FAERS Safety Report 5609169-4 (Version None)
Quarter: 2008Q1

REPORT INFORMATION
  Report Type: 
  Country: None (occurrence: None)
  Receive Date: 20080130
  Receipt Date: 20080130
  Transmission Date: 20080703
  Serious: Yes (Life-Threatening, Disabling)
  Sender: FDA-Public Use
  Company Number: None

PATIENT
  Age: 69 Year
  Sex: Female
  Weight: 65.7716 kg

DRUGS (2)
  1. METHOTREXATE [Suspect]
     Indication: OSTEOARTHRITIS
     Dosage: 6 TAB. ONCE A WK.
  2. METHOTREXATE [Suspect]
     Indication: RHEUMATOID ARTHRITIS
     Dosage: 6 TAB. ONCE A WK.

REACTIONS (1)
  - MULTIPLE MYELOMA [None]
